FAERS Safety Report 14701318 (Version 1)
Quarter: 2018Q1

REPORT INFORMATION
  Report Type: Spontaneous
  Country: US (occurrence: US)
  Receive Date: 20180328
  Receipt Date: 20180328
  Transmission Date: 20180509
  Serious: Yes (Hospitalization)
  Sender: FDA-Public Use
  Company Number: None

PATIENT
  Age: 54 Year
  Sex: Male
  Weight: 92.08 kg

DRUGS (1)
  1. FENOFIBRATE. [Suspect]
     Active Substance: FENOFIBRATE
     Indication: HYPERLIPIDAEMIA
     Route: 048
     Dates: start: 20180221, end: 20180303

REACTIONS (7)
  - Rash [None]
  - Lip swelling [None]
  - Lip ulceration [None]
  - Rhinitis allergic [None]
  - Pyrexia [None]
  - Pharyngeal oedema [None]
  - Angioedema [None]

NARRATIVE: CASE EVENT DATE: 20180302
